FAERS Safety Report 13642429 (Version 4)
Quarter: 2017Q3

REPORT INFORMATION
  Report Type: Spontaneous
  Country: DE (occurrence: DE)
  Receive Date: 20170612
  Receipt Date: 20170815
  Transmission Date: 20171127
  Serious: Yes (Hospitalization)
  Sender: FDA-Public Use
  Company Number: DE-NOVOPROD-548843

PATIENT
  Age: 58 Year
  Sex: Female
  Weight: 70 kg

DRUGS (8)
  1. NOVORAPID [Suspect]
     Active Substance: INSULIN ASPART
     Indication: TYPE 1 DIABETES MELLITUS
     Dosage: UNK
     Route: 058
  2. AMLODIPIN                          /00972401/ [Concomitant]
     Active Substance: AMLODIPINE BESYLATE
     Indication: HYPERTENSION
     Dosage: 5 MG
     Route: 065
  3. NEBIVOLOL ACTAVIS [Concomitant]
     Active Substance: NEBIVOLOL
     Indication: HYPERTENSION
     Dosage: UNK
     Route: 065
  4. LISILICH COMP [Concomitant]
     Indication: HYPERTENSION
     Dosage: 20 MG/12.5 MG
     Route: 065
  5. NOVORAPID [Suspect]
     Active Substance: INSULIN ASPART
     Dosage: 21.1 IE
     Route: 058
  6. NOVORAPID [Suspect]
     Active Substance: INSULIN ASPART
     Dosage: 35 U, QD
     Route: 058
     Dates: start: 20170601, end: 20170601
  7. NOVORAPID [Suspect]
     Active Substance: INSULIN ASPART
     Dosage: 35 U, QD
     Route: 058
     Dates: start: 20170530, end: 20170601
  8. NOVORAPID [Suspect]
     Active Substance: INSULIN ASPART
     Dosage: 35 U, QD
     Route: 058

REACTIONS (6)
  - Diabetic ketoacidosis [Recovered/Resolved]
  - Wrong technique in product usage process [Unknown]
  - Product leakage [Unknown]
  - Product leakage [Unknown]
  - Liquid product physical issue [Unknown]
  - Product container issue [Unknown]

NARRATIVE: CASE EVENT DATE: 20170601
